FAERS Safety Report 4733579-0 (Version None)
Quarter: 2005Q3

REPORT INFORMATION
  Report Type: 
  Country: None (occurrence: None)
  Receive Date: 20050729
  Receipt Date: 20050722
  Transmission Date: 20060218
  Serious: Yes (Hospitalization)
  Sender: FDA-Public Use
  Company Number: 2005-07-0180

PATIENT
  Age: 51 Year
  Sex: Male
  Weight: 55 kg

DRUGS (4)
  1. TEMODAL [Suspect]
     Indication: GLIOBLASTOMA
     Dosage: 330 MG QD
     Dates: start: 20050607, end: 20050611
  2. SOLU-MEDROL [Concomitant]
  3. OMEPRAZOLE [Concomitant]
  4. NEURONTIN [Concomitant]

REACTIONS (6)
  - DRUG HYPERSENSITIVITY [None]
  - FEBRILE BONE MARROW APLASIA [None]
  - LYMPHOPENIA [None]
  - NEUTROPENIA [None]
  - PLATELET COUNT DECREASED [None]
  - PYREXIA [None]
